FAERS Safety Report 9297702 (Version 1)
Quarter: 2013Q2

REPORT INFORMATION
  Report Type: Spontaneous
  Country: None (occurrence: None)
  Receive Date: 20130517
  Receipt Date: 20130517
  Transmission Date: 20140414
  Serious: Yes (Hospitalization)
  Sender: FDA-Public Use
  Company Number: None

PATIENT
  Age: 43 Year
  Sex: Female

DRUGS (1)
  1. PEEG-ASPARAGINASE [Suspect]
     Dates: start: 20110625, end: 20110714

REACTIONS (9)
  - Fatigue [None]
  - Hepatic enzyme increased [None]
  - Ocular icterus [None]
  - Hepatic steatosis [None]
  - Hepatic neoplasm [None]
  - Drug-induced liver injury [None]
  - Asthenia [None]
  - Cytomegalovirus test positive [None]
  - Leukaemic infiltration [None]
